FAERS Safety Report 6457398-2 (Version None)
Quarter: 2009Q4

REPORT INFORMATION
  Report Type: 
  Country: None (occurrence: None)
  Receive Date: 20091125
  Receipt Date: 20091119
  Transmission Date: 20100525
  Serious: Yes (Hospitalization)
  Sender: FDA-Public Use
  Company Number: FR-PFIZER INC-2009299891

PATIENT
  Age: 67 Year
  Sex: Female
  Weight: 48 kg

DRUGS (6)
  1. TAHOR [Suspect]
     Dosage: 20 MG, 1X/DAY
     Route: 048
     Dates: start: 20090401
  2. NEXIUM [Suspect]
     Dosage: 20 MG, 1X/DAY
     Route: 048
     Dates: start: 20090401, end: 20090724
  3. CORDARONE [Suspect]
     Dosage: 100 MG, 1X/DAY
     Route: 048
     Dates: start: 20090401, end: 20090811
  4. KARDEGIC [Concomitant]
     Dosage: 75 MG, 1X/DAY
  5. TARDYFERON [Concomitant]
     Dosage: UNK
  6. RIVOTRIL [Concomitant]
     Dosage: 5 GTT, 1X/DAY

REACTIONS (7)
  - HAEMOGLOBIN DECREASED [None]
  - LUNG DISORDER [None]
  - MYCOBACTERIAL INFECTION [None]
  - OBSTRUCTIVE AIRWAYS DISORDER [None]
  - PNEUMONITIS [None]
  - PULMONARY FIBROSIS [None]
  - THROMBOCYTOPENIA [None]
